FAERS Safety Report 9929352 (Version 2)
Quarter: 2014Q1

REPORT INFORMATION
  Report Type: Spontaneous
  Country: US (occurrence: US)
  Receive Date: 20140227
  Receipt Date: 20140227
  Transmission Date: 20141002
  Serious: Yes (Other)
  Sender: FDA-Public Use
  Company Number: US-ABBVIE-13P-163-1056542-00

PATIENT
  Age: 15 Year
  Sex: Male

DRUGS (7)
  1. ADALIMUMAB [Suspect]
     Indication: INFLAMMATORY BOWEL DISEASE
     Dates: start: 20091116, end: 201005
  2. ADALIMUMAB [Suspect]
     Indication: CROHN^S DISEASE
  3. REMICADE [Suspect]
     Indication: INFLAMMATORY BOWEL DISEASE
     Dates: start: 200511
  4. METHOTREXATE [Suspect]
     Indication: PRODUCT USED FOR UNKNOWN INDICATION
  5. PREDNISONE [Suspect]
     Indication: PRODUCT USED FOR UNKNOWN INDICATION
  6. HYDROCORTISONE [Suspect]
     Indication: PRODUCT USED FOR UNKNOWN INDICATION
  7. INFLIXIMAB [Suspect]
     Dates: start: 200511

REACTIONS (1)
  - Acute monocytic leukaemia [Recovered/Resolved]
